FAERS Safety Report 9250672 (Version 1)
Quarter: 2013Q1

REPORT INFORMATION
  Report Type: Spontaneous
  Country: US (occurrence: None)
  Receive Date: 20130305
  Receipt Date: 20130305
  Transmission Date: 20140127
  Serious: Yes (Hospitalization)
  Sender: FDA-Public Use
  Company Number: 163-21880-12082431

PATIENT
  Age: 47 Year
  Sex: Male
  Weight: 107.05 kg

DRUGS (3)
  1. REVLIMID [Suspect]
     Indication: PLASMA CELL MYELOMA
     Route: 048
     Dates: start: 2008, end: 201207
  2. CYTOXAN (CYCLOPHOSPHAMIDE) [Concomitant]
  3. VELCADE (BORTEZOMIB) [Concomitant]

REACTIONS (1)
  - Renal failure [None]
